FAERS Safety Report 9843508 (Version 1)
Quarter: 2013Q4

REPORT INFORMATION
  Report Type: Spontaneous
  Country: US (occurrence: None)
  Receive Date: 20131219
  Receipt Date: 20131219
  Transmission Date: 20140711
  Serious: Yes (Other)
  Sender: FDA-Public Use
  Company Number: 163-20785-12062434

PATIENT
  Age: 79 Year
  Sex: Female

DRUGS (6)
  1. THALIDOMIDE (THALIDOMIDE) (CAPSULES) [Suspect]
     Indication: PLASMA CELL MYELOMA
     Dosage: 50 MG, 28 IN 28 D, PO MAR/24/2011- DISCONTINUED THERAPY DATES
     Route: 048
     Dates: start: 20110324
  2. BENICAR (OLMESARTAN MEDOXOMIL) [Concomitant]
     Dosage: 50 MG, 28 IN 28 D, PO
     Route: 048
     Dates: start: 20110324
  3. FUROSEMIDE (FUROSEMIDE) [Concomitant]
  4. TEMAZEPAM (TEMAZEPAM) [Concomitant]
  5. TRAMADOL HCL [Concomitant]
  6. ZANTAC (RANITIDINE HYDROCHLORIDE) [Concomitant]

REACTIONS (3)
  - Hypoaesthesia [None]
  - Neuropathy peripheral [None]
  - Feeling abnormal [None]
